FAERS Safety Report 9482220 (Version 1)
Quarter: 2013Q3

REPORT INFORMATION
  Report Type: Spontaneous
  Country: US (occurrence: US)
  Receive Date: 20130828
  Receipt Date: 20130828
  Transmission Date: 20140515
  Serious: No
  Sender: FDA-Public Use
  Company Number: US-009507513-1308USA006541

PATIENT
  Sex: Female

DRUGS (3)
  1. VICTRELIS [Suspect]
     Dosage: 800 MG, TID
     Route: 048
  2. PEGINTRON [Suspect]
  3. REBETOL [Suspect]
     Route: 048

REACTIONS (2)
  - Rash generalised [Recovering/Resolving]
  - Rash [Recovering/Resolving]
